FAERS Safety Report 5270341-7 (Version None)
Quarter: 2007Q1

REPORT INFORMATION
  Report Type: 
  Country: None (occurrence: None)
  Receive Date: 20070320
  Receipt Date: 20070312
  Transmission Date: 20070707
  Serious: Yes (Hospitalization, Disabling, Other)
  Sender: FDA-Public Use
  Company Number: US-PFIZER INC-2007002341

PATIENT
  Sex: Male
  Weight: 81.6 kg

DRUGS (2)
  1. BEXTRA [Suspect]
     Indication: BACK PAIN
     Dosage: DAILY DOSE:20MG
     Dates: start: 20020601, end: 20030201
  2. OXYCONTIN [Concomitant]
     Dates: start: 20040101

REACTIONS (4)
  - AMNESIA [None]
  - CARDIAC ARREST [None]
  - DEPRESSION [None]
  - MYOCARDIAL INFARCTION [None]
